FAERS Safety Report 9128957 (Version 2)
Quarter: 2013Q4

REPORT INFORMATION
  Report Type: Spontaneous
  Country: US (occurrence: US)
  Receive Date: 20130125
  Receipt Date: 20131015
  Transmission Date: 20140711
  Serious: Yes (Other)
  Sender: FDA-Public Use
  Company Number: US-GLAXOSMITHKLINE-A1009664A

PATIENT
  Age: 22 Year
  Sex: Female

DRUGS (15)
  1. BENLYSTA [Suspect]
     Indication: SYSTEMIC LUPUS ERYTHEMATOSUS
     Route: 042
     Dates: start: 201209
  2. PREDNISONE [Suspect]
     Indication: PRODUCT USED FOR UNKNOWN INDICATION
     Route: 065
  3. PLAQUENIL [Concomitant]
  4. PAIN MEDICATION [Concomitant]
  5. UNKNOWN STOMACH MEDICATION [Concomitant]
  6. IMURAN [Concomitant]
  7. LEFLUNOMIDE [Concomitant]
  8. DEXILANT [Concomitant]
  9. VITAMIN B COMPLEX [Concomitant]
  10. ZOFRAN [Concomitant]
  11. VITAMIN D [Concomitant]
  12. NABUMETONE [Concomitant]
  13. ALLEGRA [Concomitant]
  14. NASONEX [Concomitant]
  15. ADVAIR [Concomitant]

REACTIONS (26)
  - Kidney infection [Recovered/Resolved]
  - Influenza [Recovering/Resolving]
  - Malaise [Recovering/Resolving]
  - Pyrexia [Recovering/Resolving]
  - Pain [Recovering/Resolving]
  - Chills [Recovering/Resolving]
  - Nausea [Recovering/Resolving]
  - Vomiting [Recovering/Resolving]
  - Diarrhoea [Recovering/Resolving]
  - Influenza like illness [Recovering/Resolving]
  - Sinusitis [Unknown]
  - Herpes zoster [Unknown]
  - Systemic lupus erythematosus [Unknown]
  - Drug ineffective [Unknown]
  - Drug administration error [Unknown]
  - Rash [Unknown]
  - Pruritus [Unknown]
  - Arthralgia [Unknown]
  - Fatigue [Unknown]
  - Feeling abnormal [Unknown]
  - Constipation [Unknown]
  - Palpitations [Unknown]
  - Decreased appetite [Unknown]
  - Headache [Unknown]
  - Temperature intolerance [Unknown]
  - Photosensitivity reaction [Unknown]
